FAERS Safety Report 10877505 (Version 1)
Quarter: 2015Q1

REPORT INFORMATION
  Report Type: Spontaneous
  Country: NL (occurrence: NL)
  Receive Date: 20150302
  Receipt Date: 20150302
  Transmission Date: 20150721
  Serious: Yes (Life-Threatening, Hospitalization)
  Sender: FDA-Public Use
  Company Number: NL-PFIZER INC-2015073678

PATIENT
  Age: 83 Year
  Sex: Female

DRUGS (4)
  1. ALLOPURINOL. [Concomitant]
     Active Substance: ALLOPURINOL
     Dosage: 100 MG, UNK
     Dates: start: 2010
  2. BUMETANIDE. [Interacting]
     Active Substance: BUMETANIDE
     Indication: ARRHYTHMIA
     Dosage: 1 MG, DAILY
     Route: 048
     Dates: start: 201209
  3. PANTOPRAZOLE [Suspect]
     Active Substance: PANTOPRAZOLE SODIUM
     Indication: PLASMA CELL MYELOMA
     Dosage: 40 MG, DAILY
     Route: 048
     Dates: start: 2000, end: 20150218
  4. ACENOCOUMAROL [Concomitant]
     Active Substance: ACENOCOUMAROL
     Dosage: 1 MG, UNK
     Route: 048
     Dates: start: 201209

REACTIONS (5)
  - Drug interaction [Recovering/Resolving]
  - Nausea [Recovering/Resolving]
  - Arrhythmia [Recovering/Resolving]
  - Fatigue [Recovering/Resolving]
  - Blood magnesium decreased [Recovering/Resolving]

NARRATIVE: CASE EVENT DATE: 20150217
